FAERS Safety Report 24042404 (Version 1)
Quarter: 2024Q3

REPORT INFORMATION
  Report Type: Spontaneous
  Country: US (occurrence: None)
  Receive Date: 20240701
  Receipt Date: 20240701
  Transmission Date: 20241016
  Serious: Yes (Disabling, Other)
  Sender: Public
  Company Number: None

PATIENT
  Age: 21 Year
  Sex: Female
  Weight: 99.79 kg

DRUGS (3)
  1. BUPROPION HYDROCHLORIDE [Suspect]
     Active Substance: BUPROPION HYDROCHLORIDE
     Dosage: FREQUENCY : DAILY;?
     Route: 048
     Dates: start: 20210501, end: 20211117
  2. HYDROXYZINE HYDROCHLORIDE [Concomitant]
     Active Substance: HYDROXYZINE HYDROCHLORIDE
  3. HYDROXYZINE PAMONATE [Concomitant]

REACTIONS (16)
  - Migraine [None]
  - Headache [None]
  - Amnesia [None]
  - Brain fog [None]
  - Anhedonia [None]
  - Tearfulness [None]
  - Dissociation [None]
  - Hyperhidrosis [None]
  - Muscle twitching [None]
  - Musculoskeletal stiffness [None]
  - Polyuria [None]
  - Body temperature increased [None]
  - Aphasia [None]
  - Communication disorder [None]
  - Heavy menstrual bleeding [None]
  - Menstrual disorder [None]

NARRATIVE: CASE EVENT DATE: 20210928
